FAERS Safety Report 14833506 (Version 2)
Quarter: 2018Q2

REPORT INFORMATION
  Report Type: Report from Study
  Country: US (occurrence: US)
  Receive Date: 20180501
  Receipt Date: 20180522
  Transmission Date: 20180711
  Serious: Yes (Hospitalization)
  Sender: FDA-Public Use
  Company Number: US-ASTELLAS-2018US019962

PATIENT
  Age: 70 Year
  Sex: Female

DRUGS (35)
  1. KAYEXALATE [Concomitant]
     Active Substance: SODIUM POLYSTYRENE SULFONATE
     Indication: HYPERKALAEMIA
     Dosage: 30 G, ONCE
     Route: 048
     Dates: start: 20170911, end: 20170911
  2. ATORVASTATIN [Concomitant]
     Active Substance: ATORVASTATIN
     Indication: CEREBROVASCULAR ACCIDENT
     Route: 048
     Dates: start: 20170909
  3. HEPARIN [Concomitant]
     Active Substance: HEPARIN SODIUM
     Dosage: 5800, ONCE
     Route: 042
     Dates: start: 20170916
  4. NIFEDIPINE. [Concomitant]
     Active Substance: NIFEDIPINE
     Indication: HYPERTENSION
     Route: 048
     Dates: start: 20170912, end: 20170915
  5. ONDANSETRON [Concomitant]
     Active Substance: ONDANSETRON
     Indication: NAUSEA
     Dosage: 4 MG, ONCE
     Route: 042
     Dates: start: 20170914, end: 20170914
  6. ACETAMINOPHEN. [Concomitant]
     Active Substance: ACETAMINOPHEN
     Dosage: 1 ML, ONCE
     Route: 042
     Dates: start: 20170914, end: 20170914
  7. AMOXICILLIN CLAVULANIC ACID [Concomitant]
     Active Substance: AMOXICILLIN\CLAVULANIC ACID
     Indication: PERIORBITAL CELLULITIS
     Dosage: 500-125 MG, TWICE DAILY
     Route: 048
     Dates: start: 201708, end: 20170914
  8. PROTONIX [Concomitant]
     Active Substance: PANTOPRAZOLE SODIUM
     Indication: PRODUCT USED FOR UNKNOWN INDICATION
     Route: 048
     Dates: end: 20170909
  9. DEXMEDETOMIDINE. [Concomitant]
     Active Substance: DEXMEDETOMIDINE
     Indication: SEDATIVE THERAPY
     Dosage: 40 ?G ONCE
     Route: 042
     Dates: start: 20170914, end: 20170914
  10. FENTANYL. [Concomitant]
     Active Substance: FENTANYL
     Indication: PAIN
     Dosage: 100 ?G, ONCE
     Route: 042
     Dates: start: 20170914, end: 20170914
  11. ISAVUCONAZOLE [Suspect]
     Active Substance: ISAVUCONAZOLE
     Indication: SINUSITIS
     Route: 042
     Dates: start: 20170914, end: 20170916
  12. GLYCOPYRROLATE                     /00196201/ [Concomitant]
     Active Substance: GLYCOPYRRONIUM
     Indication: DYSPEPSIA
     Dosage: 0.4 MG, OTHER
     Route: 042
     Dates: start: 20170914, end: 20170914
  13. ALBUTEROL W/IPRATROPIUM [Concomitant]
     Active Substance: ALBUTEROL\IPRATROPIUM
     Indication: RESPIRATORY DISORDER
     Route: 065
     Dates: start: 20170915, end: 20170915
  14. NOVOLOG [Concomitant]
     Active Substance: INSULIN ASPART
     Indication: DIABETES MELLITUS
     Dosage: UNK UNK, UNKNOWN FREQ.
     Route: 058
     Dates: end: 20170909
  15. CLINDAMYCIN. [Concomitant]
     Active Substance: CLINDAMYCIN
     Indication: PERIORBITAL CELLULITIS
     Route: 048
     Dates: start: 20170910, end: 20170911
  16. HEPARIN [Concomitant]
     Active Substance: HEPARIN SODIUM
     Indication: PROPHYLAXIS
     Dosage: 5000 UNIT, THRICE DAILY
     Route: 058
     Dates: start: 20170909, end: 20170915
  17. AMLODIPINE [Concomitant]
     Active Substance: AMLODIPINE BESYLATE
     Indication: HYPERTENSION
     Route: 048
  18. MELATONIN [Concomitant]
     Active Substance: MELATONIN
     Indication: RESTLESSNESS
     Route: 048
     Dates: start: 20170913
  19. TRAMADOL. [Concomitant]
     Active Substance: TRAMADOL
     Indication: PAIN
     Route: 048
     Dates: start: 20170910, end: 20170911
  20. HYDROXYZINE [Concomitant]
     Active Substance: HYDROXYZINE HYDROCHLORIDE
     Indication: ANXIETY
     Dosage: 25 MG, ONCE DAILY (STARTED PRIOR TO HOSPITALIZATION)
     Route: 048
     Dates: end: 20170909
  21. LEVEMIR [Concomitant]
     Active Substance: INSULIN DETEMIR
     Indication: DIABETES MELLITUS
     Dosage: UNK UNK, UNKNOWN FREQ.
     Route: 058
     Dates: end: 20170909
  22. ISOPHANE INSULIN [Concomitant]
     Active Substance: INSULIN NOS
     Indication: DIABETES MELLITUS
     Dosage: 5 UNITS, ONCE DAILY
     Route: 058
     Dates: start: 20170917, end: 20170918
  23. VANCOMYCIN [Concomitant]
     Active Substance: VANCOMYCIN
     Indication: SINUSITIS
     Route: 042
     Dates: start: 20170914, end: 20170916
  24. ACETAMINOPHEN. [Concomitant]
     Active Substance: ACETAMINOPHEN
     Indication: PAIN
     Route: 048
     Dates: start: 20170910, end: 20170914
  25. CARVEDILOL. [Concomitant]
     Active Substance: CARVEDILOL
     Indication: HYPERTENSION
     Route: 048
  26. ACETAMINOPHEN W/HYDROCODONE [Concomitant]
     Active Substance: ACETAMINOPHEN\HYDROCODONE
     Indication: PAIN
     Dosage: 325 - 5 MG ONCE
     Route: 048
     Dates: start: 20170909, end: 20170909
  27. DOCUSATE [Concomitant]
     Active Substance: DOCUSATE
     Indication: CONSTIPATION
     Route: 048
     Dates: start: 20170910
  28. INSULIN REGULAR                    /01223201/ [Concomitant]
     Active Substance: INSULIN BEEF
     Indication: DIABETES MELLITUS
     Dosage: UNK UNK, AS NEEDED
     Route: 058
     Dates: start: 20170910
  29. LINEZOLID. [Concomitant]
     Active Substance: LINEZOLID
     Indication: SINUSITIS
     Route: 042
     Dates: start: 20170913, end: 20170914
  30. ROCURONIUM [Concomitant]
     Active Substance: ROCURONIUM BROMIDE
     Indication: INDUCTION OF ANAESTHESIA
     Dosage: 40 MG, ONCE
     Route: 042
     Dates: start: 20170914, end: 20170914
  31. LORAZEPAM. [Concomitant]
     Active Substance: LORAZEPAM
     Indication: ANXIETY
     Dosage: 1 MG, ONCE
     Route: 042
     Dates: start: 20170909, end: 20170909
  32. ASPIRIN. [Concomitant]
     Active Substance: ASPIRIN
     Indication: CEREBROVASCULAR ACCIDENT
     Route: 048
     Dates: start: 20170909, end: 20170917
  33. FUROSEMIDE. [Concomitant]
     Active Substance: FUROSEMIDE
     Indication: CHRONIC KIDNEY DISEASE
     Dosage: 40 MG, ONCE
     Route: 042
     Dates: start: 20170915, end: 20170915
  34. PIPERACILIN/TAZOBACTAM [Concomitant]
     Active Substance: PIPERACILLIN SODIUM\TAZOBACTAM SODIUM
     Indication: SINUSITIS
     Route: 042
     Dates: start: 20170913, end: 20170916
  35. PROPOFOL. [Concomitant]
     Active Substance: PROPOFOL
     Indication: INDUCTION OF ANAESTHESIA
     Dosage: 100 MG, ONCE
     Route: 042
     Dates: start: 20170914, end: 20170914

REACTIONS (4)
  - Pulse absent [Recovered/Resolved]
  - Loss of consciousness [Recovered/Resolved]
  - Vomiting [Recovered/Resolved]
  - Nausea [Recovered/Resolved]

NARRATIVE: CASE EVENT DATE: 20170916
